FAERS Safety Report 11177915 (Version 1)
Quarter: 2015Q2

REPORT INFORMATION
  Report Type: Spontaneous
  Country: US (occurrence: None)
  Receive Date: 20150609
  Receipt Date: 20150609
  Transmission Date: 20150821
  Serious: Yes (Life-Threatening)
  Sender: FDA-Public Use
  Company Number: None

PATIENT
  Age: 57 Year
  Sex: Female
  Weight: 56.7 kg

DRUGS (3)
  1. HYDROGEN PEROXIDE. [Concomitant]
     Active Substance: HYDROGEN PEROXIDE
  2. PHILLIPS MILK OF MAGNESIA [Concomitant]
  3. NEILMED SINUS RINSE [Suspect]
     Active Substance: SODIUM BICARBONATE\SODIUM CHLORIDE

REACTIONS (7)
  - Eye pain [None]
  - Mental impairment [None]
  - Sensory disturbance [None]
  - Incorrect route of drug administration [None]
  - Burning sensation [None]
  - Toothache [None]
  - Visual impairment [None]

NARRATIVE: CASE EVENT DATE: 20150608
